FAERS Safety Report 25205906 (Version 1)
Quarter: 2025Q2

REPORT INFORMATION
  Report Type: Spontaneous
  Country: JP (occurrence: JP)
  Receive Date: 20250417
  Receipt Date: 20250417
  Transmission Date: 20250717
  Serious: Yes (Hospitalization)
  Sender: ROCHE
  Company Number: JP-CHUGAI-2025011865

PATIENT
  Age: 58 Year
  Sex: Male
  Weight: 60.6 kg

DRUGS (2)
  1. PERJETA [Suspect]
     Active Substance: PERTUZUMAB
     Indication: Colon cancer
     Route: 042
     Dates: start: 20240404, end: 20240404
  2. SODIUM CHLORIDE [Concomitant]
     Active Substance: SODIUM CHLORIDE
     Route: 042

REACTIONS (4)
  - Pruritus [Unknown]
  - Rash [Unknown]
  - Discomfort [Unknown]
  - Chills [Unknown]

NARRATIVE: CASE EVENT DATE: 20250404
